FAERS Safety Report 25976279 (Version 1)
Quarter: 2025Q4

REPORT INFORMATION
  Report Type: Spontaneous
  Country: US (occurrence: None)
  Receive Date: 20251029
  Receipt Date: 20251029
  Transmission Date: 20260118
  Serious: No
  Sender: FDA-CTU
  Company Number: None

PATIENT
  Age: 61 Year
  Sex: Female

DRUGS (4)
  1. LENVIMA [Suspect]
     Active Substance: LENVATINIB
     Indication: Endometrial cancer
     Dosage: 8 MG DAILY ORAL ?
     Route: 048
  2. AUGMENTIN [Suspect]
     Active Substance: AMOXICILLIN\CLAVULANATE POTASSIUM
  3. CIPRO [Suspect]
     Active Substance: CIPROFLOXACIN HYDROCHLORIDE
  4. DOXYCYCLINE [Suspect]
     Active Substance: DOXYCYCLINE

REACTIONS (10)
  - Wound [None]
  - Joint injury [None]
  - Pain [None]
  - Rash [None]
  - Pyrexia [None]
  - Systemic inflammatory response syndrome [None]
  - Hypoxia [None]
  - Pseudomonas test positive [None]
  - Staphylococcus test positive [None]
  - Therapy interrupted [None]

NARRATIVE: CASE EVENT DATE: 20251010
